FAERS Safety Report 12756006 (Version 1)
Quarter: 2016Q3

REPORT INFORMATION
  Report Type: Spontaneous
  Country: US (occurrence: US)
  Receive Date: 20160916
  Receipt Date: 20160916
  Transmission Date: 20161109
  Serious: Yes (Other)
  Sender: FDA-Public Use
  Company Number: US-ASTRAZENECA-2016SE96974

PATIENT
  Age: 70 Year
  Sex: Female

DRUGS (10)
  1. DILACOR [Concomitant]
     Route: 048
  2. MACROBID [Concomitant]
     Active Substance: NITROFURANTOIN\NITROFURANTOIN MONOHYDRATE
     Route: 048
     Dates: start: 20160128
  3. SIMVASTATIN. [Concomitant]
     Active Substance: SIMVASTATIN
     Route: 048
  4. LISINOPRIL. [Suspect]
     Active Substance: LISINOPRIL
     Route: 048
  5. PROZAC [Concomitant]
     Active Substance: FLUOXETINE HYDROCHLORIDE
     Route: 048
  6. AMBIEN [Concomitant]
     Active Substance: ZOLPIDEM TARTRATE
     Dosage: AS NEEDED
     Route: 048
  7. FASLODEX [Suspect]
     Active Substance: FULVESTRANT
     Route: 030
     Dates: start: 201411
  8. IBRANCE [Concomitant]
     Active Substance: PALBOCICLIB
     Route: 048
     Dates: start: 20160622
  9. PERCOCET [Concomitant]
     Active Substance: ACETAMINOPHEN\OXYCODONE HYDROCHLORIDE
     Dosage: 5-325 MG, EVERY 4-5 HOURS AS NEEDED
     Route: 048
     Dates: start: 20160822, end: 20160830
  10. TRAMADOL. [Concomitant]
     Active Substance: TRAMADOL
     Dosage: AS NEEDED
     Route: 048
     Dates: start: 20160727

REACTIONS (9)
  - Myalgia [Unknown]
  - Metastases to bone [Unknown]
  - Disease progression [Unknown]
  - Fatigue [Unknown]
  - Breast cancer [Unknown]
  - Hot flush [Unknown]
  - Metastases to liver [Unknown]
  - Back pain [Unknown]
  - Metastases to spine [Unknown]
